FAERS Safety Report 9547418 (Version 3)
Quarter: 2013Q4

REPORT INFORMATION
  Report Type: Spontaneous
  Country: JP (occurrence: JP)
  Receive Date: 20130924
  Receipt Date: 20131004
  Transmission Date: 20140711
  Serious: Yes (Hospitalization, Other)
  Sender: FDA-Public Use
  Company Number: PHHY2013JP105098

PATIENT
  Sex: Male

DRUGS (3)
  1. RITALIN [Suspect]
     Indication: DEPRESSION
     Dosage: UNK
     Route: 048
  2. BRONCHI PLUS [Suspect]
  3. DEPAS [Suspect]

REACTIONS (19)
  - Drug abuse [Unknown]
  - Drug dependence [Unknown]
  - Suicide attempt [Unknown]
  - Drug withdrawal syndrome [Unknown]
  - Formication [Unknown]
  - Sensation of heaviness [Unknown]
  - Palpitations [Unknown]
  - Memory impairment [Unknown]
  - Tension [Unknown]
  - Discomfort [Unknown]
  - Feeling abnormal [Unknown]
  - Affective disorder [Unknown]
  - Confusional state [Unknown]
  - Aggression [Unknown]
  - Negative thoughts [Unknown]
  - Insomnia [Unknown]
  - Fatigue [Unknown]
  - Irritability [Unknown]
  - Anxiety [Unknown]
